FAERS Safety Report 4820521-7 (Version None)
Quarter: 2005Q4

REPORT INFORMATION
  Report Type: 
  Country: None (occurrence: None)
  Receive Date: 20051104
  Receipt Date: 20051024
  Transmission Date: 20060501
  Serious: Yes (Death)
  Sender: FDA-Public Use
  Company Number: GB-GLAXOSMITHKLINE-B0398982A

PATIENT
  Age: 78 Year
  Sex: Female
  Weight: 52 kg

DRUGS (7)
  1. CALCIUM CARBONATE [Suspect]
     Dosage: 1.3MG TWICE PER DAY
  2. PNEUMOVAX II [Suspect]
     Route: 058
     Dates: start: 20040712, end: 20040712
  3. LEVOTHYROXINE SODIUM [Concomitant]
     Indication: HYPOTHYROIDISM
     Dosage: 75MCG PER DAY
     Route: 048
     Dates: start: 20020412
  4. SALBUTAMOL [Concomitant]
     Indication: ASTHMA
     Dates: start: 20030701
  5. QVAR [Concomitant]
     Indication: ASTHMA
     Dates: start: 20040406
  6. ALENDRONATE SODIUM [Concomitant]
     Indication: OSTEOPOROSIS
     Dosage: 70MG WEEKLY
     Route: 048
     Dates: start: 20021202
  7. RABEPRAZOLE SODIUM [Concomitant]
     Dosage: 10MG PER DAY
     Dates: start: 20030410

REACTIONS (3)
  - CARDIAC FAILURE [None]
  - CHEST PAIN [None]
  - MYOCARDIAL ISCHAEMIA [None]
